FAERS Safety Report 7996440-4 (Version None)
Quarter: 2011Q4

REPORT INFORMATION
  Report Type: 
  Country: None (occurrence: None)
  Receive Date: 20111220
  Receipt Date: 20111216
  Transmission Date: 20120403
  Serious: Yes (Death)
  Sender: FDA-Public Use
  Company Number: US-ASTRAZENECA-2011SE76371

PATIENT
  Age: 59 Year
  Sex: Female

DRUGS (9)
  1. CARBAMAZEPINE [Suspect]
     Route: 048
  2. ENALAPRIL MALEATE [Suspect]
     Route: 048
  3. BUSPIRONE HCL [Suspect]
     Route: 048
  4. ATENOLOL [Suspect]
     Route: 048
  5. OMEPRAZOLE [Suspect]
     Route: 048
  6. ALPRAZOLAM [Suspect]
     Route: 048
  7. HYDROXYCHLOROQUINE SULFATE [Suspect]
     Route: 048
  8. PREDNISONE TAB [Suspect]
     Route: 048
  9. ACETAMINOPHEN AND HYDROCODONE BITARTRATE [Suspect]
     Route: 048

REACTIONS (2)
  - COMPLETED SUICIDE [None]
  - TOXICITY TO VARIOUS AGENTS [None]
